FAERS Safety Report 9798895 (Version 2)
Quarter: 2014Q1

REPORT INFORMATION
  Report Type: Spontaneous
  Country: US (occurrence: US)
  Receive Date: 20140106
  Receipt Date: 20140106
  Transmission Date: 20141002
  Serious: No
  Sender: FDA-Public Use
  Company Number: US-GILEAD-2010-0032241

PATIENT
  Age: 41 Year
  Sex: Male
  Weight: 131.9 kg

DRUGS (12)
  1. LETAIRIS [Suspect]
     Indication: PULMONARY ARTERIAL HYPERTENSION
     Route: 048
     Dates: start: 20100210
  2. REMODULIN [Concomitant]
  3. ADCIRCA [Concomitant]
  4. LISINOPRIL [Concomitant]
  5. WARFARIN [Concomitant]
  6. NORVASC [Concomitant]
  7. DIGOXIN [Concomitant]
  8. LASIX [Concomitant]
  9. SIMVASTATIN [Concomitant]
  10. OXYGEN [Concomitant]
  11. HYDROCODONE/APAP [Concomitant]
  12. KLOR-CON [Concomitant]

REACTIONS (4)
  - Dyspepsia [Unknown]
  - Abdominal discomfort [Unknown]
  - Nausea [Unknown]
  - Vomiting [Unknown]
